FAERS Safety Report 9294242 (Version 1)
Quarter: 2013Q1

REPORT INFORMATION
  Report Type: Spontaneous
  Country: US (occurrence: None)
  Receive Date: 20121214
  Receipt Date: 20121214
  Transmission Date: 20140127
  Serious: Yes (Hospitalization, Other)
  Sender: FDA-Public Use
  Company Number: 1206USA02241

PATIENT
  Age: 41 Year
  Sex: Female

DRUGS (8)
  1. JANUVIA [Suspect]
     Route: 048
     Dates: end: 201205
  2. LANTUS (INSULIN GLARGINE) [Concomitant]
  3. LANTUS (INSULIN GLARGINE) [Concomitant]
  4. METFORMIN HYDROCHLORIDE (METFORMIN HYDROCHLORIDE) [Concomitant]
  5. CRESTOR (ROSUVASTATIN CALCIUM) [Concomitant]
  6. FENOFIBRATE (FENOFIBRATE) (FENOFIBRATE) [Concomitant]
  7. RAMIPRIL (RAMPRIL) [Concomitant]
  8. LOSARTAN POTASSIUM (LOSARTAN POTASSIUM) [Concomitant]

REACTIONS (3)
  - Pancreatitis acute [None]
  - Metabolic syndrome [None]
  - Osteoarthritis [None]
